FAERS Safety Report 12137308 (Version 1)
Quarter: 2016Q1

REPORT INFORMATION
  Report Type: Spontaneous
  Country: US (occurrence: US)
  Receive Date: 20160302
  Receipt Date: 20160302
  Transmission Date: 20160526
  Serious: No
  Sender: FDA-Public Use
  Company Number: US-ACTAVIS-2015-15671

PATIENT
  Age: 84 Year
  Sex: Male

DRUGS (10)
  1. OXYTROL [Suspect]
     Active Substance: OXYBUTYNIN
     Indication: INCONTINENCE
     Dosage: 3.9 MG/DAY, ONE PATCH EVERY FOUR DAYS
     Route: 062
     Dates: start: 20150720
  2. OXYBUTYNIN [Concomitant]
     Active Substance: OXYBUTYNIN
     Indication: MICTURITION DISORDER
     Dosage: UNK UNK, UNKNOWN
     Route: 048
  3. NORVASC [Concomitant]
     Active Substance: AMLODIPINE BESYLATE
     Indication: BLOOD PRESSURE ABNORMAL
     Dosage: 10 MG, DAILY
     Route: 048
  4. COREG [Concomitant]
     Active Substance: CARVEDILOL
     Indication: BLOOD PRESSURE ABNORMAL
     Dosage: 25 MG, BID
     Route: 048
  5. LASIX [Concomitant]
     Active Substance: FUROSEMIDE
     Indication: BLOOD PRESSURE ABNORMAL
     Dosage: 20 MG, DAILY
     Route: 048
  6. CRESTOR [Concomitant]
     Active Substance: ROSUVASTATIN CALCIUM
     Indication: BLOOD CHOLESTEROL ABNORMAL
     Dosage: 20 MG, DAILY
     Route: 048
  7. HYTRIN [Concomitant]
     Active Substance: TERAZOSIN HYDROCHLORIDE
     Indication: BLOOD PRESSURE ABNORMAL
     Dosage: 5 MG, PRN
     Route: 048
  8. AVAPRO [Concomitant]
     Active Substance: IRBESARTAN
     Indication: BLOOD PRESSURE ABNORMAL
     Dosage: 150 MG, UNKNOWN
     Route: 048
  9. WARFARIN [Concomitant]
     Active Substance: WARFARIN
     Indication: THROMBOSIS PROPHYLAXIS
     Dosage: 5 MG, DAILY
     Route: 048
  10. PROSCAR [Concomitant]
     Active Substance: FINASTERIDE
     Indication: PROSTATISM
     Dosage: 5 MG, UNKNOWN
     Route: 048

REACTIONS (3)
  - Asthenia [Not Recovered/Not Resolved]
  - Incontinence [Not Recovered/Not Resolved]
  - Drug effect incomplete [Not Recovered/Not Resolved]

NARRATIVE: CASE EVENT DATE: 20150722
